FAERS Safety Report 8212115-0 (Version None)
Quarter: 2012Q1

REPORT INFORMATION
  Report Type: 
  Country: None (occurrence: None)
  Receive Date: 20120315
  Receipt Date: 20120313
  Transmission Date: 20120608
  Serious: Yes (Other)
  Sender: FDA-Public Use
  Company Number: US-GLAXOSMITHKLINE-A0969779A

PATIENT

DRUGS (1)
  1. NICORETTE [Suspect]
     Indication: PRODUCT USED FOR UNKNOWN INDICATION
     Route: 002

REACTIONS (3)
  - HALLUCINATION, VISUAL [None]
  - HYPOAESTHESIA [None]
  - SENSORY DISTURBANCE [None]
